FAERS Safety Report 5522834-2 (Version None)
Quarter: 2007Q4

REPORT INFORMATION
  Report Type: 
  Country: None (occurrence: None)
  Receive Date: 20071120
  Receipt Date: 20071115
  Transmission Date: 20080405
  Serious: Yes (Other)
  Sender: FDA-Public Use
  Company Number: FR-ALLERGAN-0712651US

PATIENT
  Sex: Female

DRUGS (2)
  1. BOTOX 100 UNITS [Suspect]
     Indication: SALIVARY HYPERSECRETION
     Dosage: UNK, SINGLE
  2. L-DOPA [Concomitant]
     Indication: PARKINSON'S DISEASE

REACTIONS (2)
  - DYSPHAGIA [None]
  - DYSPHONIA [None]
